FAERS Safety Report 17498333 (Version 1)
Quarter: 2020Q1

REPORT INFORMATION
  Report Type: Spontaneous
  Country: GB (occurrence: GB)
  Receive Date: 20200304
  Receipt Date: 20200304
  Transmission Date: 20200409
  Serious: Yes (Other)
  Sender: FDA-Public Use
  Company Number: GB-PFIZER INC-2020092533

PATIENT
  Age: 51 Year
  Sex: Female
  Weight: 60 kg

DRUGS (7)
  1. CERELLE [Concomitant]
     Active Substance: DESOGESTREL
     Dosage: 1 DF, 1X/DAY
     Dates: start: 20200109, end: 20200206
  2. IBUPROFEN. [Suspect]
     Active Substance: IBUPROFEN
     Dosage: 300 MG, UNK
     Dates: start: 20200210
  3. ELLESTE DUET [Concomitant]
     Active Substance: ESTRADIOL\NORETHINDRONE ACETATE
     Dosage: 1 DF, 1X/DAY
     Dates: start: 20200109
  4. NAPROXEN. [Concomitant]
     Active Substance: NAPROXEN
     Dosage: 2 DF, 1X/DAY
     Dates: start: 20200210
  5. PREGABALIN. [Concomitant]
     Active Substance: PREGABALIN
     Dosage: 3 DF, 1X/DAY
     Dates: start: 20191206, end: 20200103
  6. VENSIR [Concomitant]
     Active Substance: VENLAFAXINE HYDROCHLORIDE
     Dosage: 1 DF, 1X/DAY
     Dates: start: 20200210
  7. EVOREL [Concomitant]
     Dosage: 2 DF, WEEKLY (APPLY)
     Dates: start: 20190712, end: 20200109

REACTIONS (2)
  - Rash [Unknown]
  - Gastrointestinal disorder [Unknown]

NARRATIVE: CASE EVENT DATE: 20200210
